FAERS Safety Report 20460729 (Version 2)
Quarter: 2022Q1

REPORT INFORMATION
  Report Type: Report from Study
  Country: CO (occurrence: CO)
  Receive Date: 20220211
  Receipt Date: 20220225
  Transmission Date: 20220423
  Serious: Yes (Disabling, Other)
  Sender: FDA-Public Use
  Company Number: CO-TAKEDA-CO202005976

PATIENT
  Age: 10 Year
  Sex: Male
  Weight: 35 kg

DRUGS (12)
  1. IDURSULFASE [Suspect]
     Active Substance: IDURSULFASE
     Indication: Mucopolysaccharidosis II
     Dosage: 2 DOSAGE FORM, 1/WEEK
     Route: 042
     Dates: start: 20131129
  2. IDURSULFASE [Suspect]
     Active Substance: IDURSULFASE
     Dosage: 12 MILLIGRAM, 1/WEEK
     Route: 042
  3. IDURSULFASE [Suspect]
     Active Substance: IDURSULFASE
     Dosage: 18 MILLIGRAM, 1/WEEK
     Route: 042
  4. IDURSULFASE [Suspect]
     Active Substance: IDURSULFASE
     Dosage: 18 MILLIGRAM, 1/WEEK
     Route: 042
     Dates: start: 20131129
  5. IDURSULFASE [Suspect]
     Active Substance: IDURSULFASE
     Dosage: 18 MILLIGRAM, 1/WEEK
     Route: 042
     Dates: start: 20131129
  6. IDURSULFASE [Suspect]
     Active Substance: IDURSULFASE
     Dosage: 18 MILLIGRAM, QD
     Route: 042
     Dates: start: 20131129
  7. IDURSULFASE [Suspect]
     Active Substance: IDURSULFASE
     Dosage: 18 MILLIGRAM
     Route: 042
     Dates: start: 20130103
  8. IDURSULFASE [Suspect]
     Active Substance: IDURSULFASE
     Dosage: 18 MILLIGRAM
     Route: 042
     Dates: start: 201310
  9. LORATADINE [Concomitant]
     Active Substance: LORATADINE
     Indication: Product used for unknown indication
     Dosage: UNK
     Route: 065
  10. FUROSEMIDE [Concomitant]
     Active Substance: FUROSEMIDE
     Dosage: 20 MILLIGRAM, QD
     Route: 065
  11. ENALAPRIL [Concomitant]
     Active Substance: ENALAPRIL
     Dosage: 2.5 MILLIGRAM, QD
     Route: 065
  12. BECLOMETHASONE [Concomitant]
     Active Substance: BECLOMETHASONE
     Dosage: UNK
     Route: 045

REACTIONS (54)
  - Mitral valve incompetence [Unknown]
  - Mitral valve prolapse [Unknown]
  - Eye disorder [Unknown]
  - Bacteraemia [Unknown]
  - Deafness bilateral [Unknown]
  - Weight increased [Unknown]
  - Body height increased [Unknown]
  - Poor venous access [Recovered/Resolved]
  - Infusion site pain [Recovering/Resolving]
  - Infusion site oedema [Recovering/Resolving]
  - Spinal pain [Unknown]
  - Infusion site bruising [Recovered/Resolved]
  - Pain in extremity [Unknown]
  - Odynophagia [Unknown]
  - Myalgia [Unknown]
  - Condition aggravated [Unknown]
  - Puncture site pain [Recovered/Resolved]
  - Musculoskeletal stiffness [Unknown]
  - Aphthous ulcer [Not Recovered/Not Resolved]
  - Neck pain [Unknown]
  - Pharyngitis [Recovering/Resolving]
  - Sneezing [Not Recovered/Not Resolved]
  - Epistaxis [Not Recovered/Not Resolved]
  - Infusion site haematoma [Unknown]
  - Pharyngeal erythema [Unknown]
  - Heart sounds abnormal [Unknown]
  - Musculoskeletal pain [Unknown]
  - Diarrhoea [Unknown]
  - Abdominal pain [Unknown]
  - Cough [Not Recovered/Not Resolved]
  - Oedema peripheral [Recovered/Resolved]
  - Headache [Unknown]
  - Infusion site inflammation [Recovering/Resolving]
  - Pain [Recovered/Resolved]
  - Ecchymosis [Recovered/Resolved]
  - Complication of device insertion [Unknown]
  - Therapy cessation [Recovering/Resolving]
  - Off label use [Unknown]
  - Product prescribing issue [Unknown]
  - Product dose omission issue [Recovered/Resolved]
  - Incorrect dosage administered [Unknown]
  - Product administration error [Unknown]
  - Dizziness [Recovered/Resolved]
  - Feeling cold [Recovered/Resolved]
  - Nausea [Recovered/Resolved]
  - Pallor [Recovered/Resolved]
  - Sleep apnoea syndrome [Unknown]
  - Adenoidal hypertrophy [Unknown]
  - Posture abnormal [Recovered/Resolved]
  - Frequent bowel movements [Unknown]
  - Pruritus [Unknown]
  - Skin exfoliation [Unknown]
  - Urinary glycosaminoglycans [Unknown]
  - Poor quality sleep [Unknown]

NARRATIVE: CASE EVENT DATE: 20190918
